FAERS Safety Report 14332544 (Version 5)
Quarter: 2018Q1

REPORT INFORMATION
  Report Type: Spontaneous
  Country: KR (occurrence: KR)
  Receive Date: 20171228
  Receipt Date: 20180212
  Transmission Date: 20180509
  Serious: Yes (Other)
  Sender: FDA-Public Use
  Company Number: KR-009507513-1709KOR004186

PATIENT
  Age: 64 Year
  Sex: Male
  Weight: 62 kg

DRUGS (3)
  1. MIDAZOLAM [Concomitant]
     Active Substance: MIDAZOLAM HYDROCHLORIDE
     Indication: SEDATION
     Dosage: 3 MG, QD
     Route: 042
     Dates: start: 20170518, end: 20170518
  2. ATOZET [Suspect]
     Active Substance: ATORVASTATIN CALCIUM\EZETIMIBE
     Indication: PRIMARY HYPERCHOLESTEROLAEMIA
     Dosage: 1 TABLET/DAY
     Route: 048
     Dates: start: 20170109, end: 20170710
  3. FLUNIL (FLUMAZENIL) [Concomitant]
     Indication: REVERSAL OF SEDATION
     Dosage: 1 AMPLE, QD
     Route: 042
     Dates: start: 20170518, end: 20170518

REACTIONS (2)
  - Muscle spasms [Recovered/Resolved]
  - Interstitial lung disease [Recovering/Resolving]

NARRATIVE: CASE EVENT DATE: 20170518
